FAERS Safety Report 8344014-8 (Version None)
Quarter: 2012Q2

REPORT INFORMATION
  Report Type: 
  Country: None (occurrence: None)
  Receive Date: 20120508
  Receipt Date: 20101116
  Transmission Date: 20120825
  Serious: No
  Sender: FDA-Public Use
  Company Number: US-TEVA-2010005975

PATIENT
  Sex: Female
  Weight: 64.468 kg

DRUGS (5)
  1. BENADRYL [Concomitant]
     Dates: start: 20101116, end: 20101116
  2. RITUXAN [Concomitant]
     Dates: start: 20101116, end: 20101116
  3. TREANDA [Suspect]
     Indication: DIFFUSE LARGE B-CELL LYMPHOMA
     Route: 042
     Dates: start: 20101116, end: 20101116
  4. ALOXI [Concomitant]
     Dates: start: 20101116, end: 20101116
  5. TYLENOL (CAPLET) [Concomitant]
     Dates: start: 20101116, end: 20101116

REACTIONS (4)
  - ADMINISTRATION SITE PAIN [None]
  - INFUSION SITE OEDEMA [None]
  - EXTRAVASATION [None]
  - APPLICATION SITE ERYTHEMA [None]
